FAERS Safety Report 4480290-X (Version None)
Quarter: 2004Q3

REPORT INFORMATION
  Report Type: 
  Country: None (occurrence: None)
  Receive Date: 20040923
  Receipt Date: 20040706
  Transmission Date: 20050211
  Serious: No
  Sender: FDA-Public Use
  Company Number: USA040566840

PATIENT
  Age: 80 Year
  Sex: Female
  Weight: 77 kg

DRUGS (15)
  1. FORTEO [Suspect]
     Indication: OSTEOPOROSIS
     Dosage: 20 UG DAY
     Dates: start: 20040330, end: 20040330
  2. HUMULIN N [Concomitant]
  3. CALCIUM PLUS D [Concomitant]
  4. DURAGESIC [Concomitant]
  5. FOSAMAX [Concomitant]
  6. LANTUS [Concomitant]
  7. K-DUR 10 [Concomitant]
  8. LASIX [Concomitant]
  9. MAG-OX (MAGNESIUM OXIDE) [Concomitant]
  10. METOPROLOL [Concomitant]
  11. MOTRIN [Concomitant]
  12. PERCOCET [Concomitant]
  13. PROTONIX [Concomitant]
  14. REMERON [Concomitant]
  15. SYNTHROID [Concomitant]

REACTIONS (3)
  - GENERALISED ERYTHEMA [None]
  - RASH PRURITIC [None]
  - SKIN BURNING SENSATION [None]
